FAERS Safety Report 4524806-3 (Version None)
Quarter: 2004Q4

REPORT INFORMATION
  Report Type: 
  Country: None (occurrence: None)
  Receive Date: 20041209
  Receipt Date: 20041208
  Transmission Date: 20050328
  Serious: Yes (Other)
  Sender: FDA-Public Use
  Company Number: 2223

PATIENT
  Age: 9 Year
  Sex: Female

DRUGS (1)
  1. ISONIAZID [Suspect]
     Indication: TUBERCULOSIS
     Dosage: 300MG  1/DAY ORAL
     Route: 048
     Dates: start: 20040801

REACTIONS (2)
  - AMNESIA [None]
  - NICOTINIC ACID DEFICIENCY [None]
